FAERS Safety Report 6086213-4 (Version None)
Quarter: 2009Q1

REPORT INFORMATION
  Report Type: 
  Country: None (occurrence: None)
  Receive Date: 20090220
  Receipt Date: 20090209
  Transmission Date: 20090719
  Serious: Yes (Other)
  Sender: FDA-Public Use
  Company Number: US-AMGEN-QUU332655

PATIENT
  Sex: Male

DRUGS (2)
  1. EPOGEN [Suspect]
     Indication: DIALYSIS
  2. ARANESP [Suspect]
     Indication: DIALYSIS
     Route: 065

REACTIONS (2)
  - PERITONITIS [None]
  - THERAPEUTIC RESPONSE DECREASED [None]
